FAERS Safety Report 21772516 (Version 1)
Quarter: 2022Q4

REPORT INFORMATION
  Report Type: Spontaneous
  Country: FR (occurrence: FR)
  Receive Date: 20221223
  Receipt Date: 20221223
  Transmission Date: 20230113
  Serious: Yes (Hospitalization)
  Sender: FDA-Public Use
  Company Number: None

PATIENT
  Age: 3 Year
  Sex: Female
  Weight: 14 kg

DRUGS (4)
  1. AMOXICILLIN [Suspect]
     Active Substance: AMOXICILLIN
     Indication: Accidental exposure to product by child
     Dosage: UNIT DOSE: 1G; FREQ TIME: 1TOTAL; AMOXICILLINE
     Dates: start: 20210304, end: 20210304
  2. ACETAMINOPHEN\BELLADONNA LEAF\CAFFEINE\OPIUM [Suspect]
     Active Substance: ACETAMINOPHEN\BELLADONNA LEAF\CAFFEINE\OPIUM
     Indication: Accidental exposure to product by child
     Dosage: UNIT DOSE: 1DF; FREQ TIME: 1 TOTAL
     Dates: start: 20210304, end: 20210304
  3. PRAZEPAM [Suspect]
     Active Substance: PRAZEPAM
     Indication: Accidental exposure to product by child
     Dosage: PRAZEPAM BIOGARAN 10 MG,
     Dates: start: 20210304, end: 20210304
  4. IMOVANE [Suspect]
     Active Substance: ZOPICLONE
     Indication: Accidental exposure to product by child
     Dosage: IMOVANE 3.75 MG ; UNIT DOSE: 3.75MG; FREQ TIME: 1 TOTAL
     Dates: start: 20210304, end: 20210304

REACTIONS (5)
  - Accidental exposure to product by child [Recovered/Resolved]
  - Somnolence [Recovered/Resolved]
  - Hypotonia [Recovered/Resolved]
  - Accidental overdose [Recovered/Resolved]
  - Gait disturbance [Recovered/Resolved]

NARRATIVE: CASE EVENT DATE: 20210304
